FAERS Safety Report 9491761 (Version 2)
Quarter: 2013Q3

REPORT INFORMATION
  Report Type: Not Available
  Country: US (occurrence: US)
  Receive Date: 20130919
  Receipt Date: 20130919
  Transmission Date: 20140515
  Serious: Yes (Other)
  Sender: FDA-Public Use
  Company Number: US-LUNDBECK-DKLU1082833

PATIENT
  Sex: 0

DRUGS (1)
  1. SABRIL (TABLET) [Suspect]
     Indication: DRUG ABUSE

REACTIONS (1)
  - Visual impairment [Unknown]
